FAERS Safety Report 9962757 (Version 2)
Quarter: 2014Q1

REPORT INFORMATION
  Report Type: Report from Study
  Country: US (occurrence: US)
  Receive Date: 20140305
  Receipt Date: 20140305
  Transmission Date: 20141002
  Serious: Yes (Other)
  Sender: FDA-Public Use
  Company Number: US-ABBVIE-13P-163-1064352-00

PATIENT
  Age: 61 Year
  Sex: Female

DRUGS (18)
  1. HUMIRA [Suspect]
     Indication: RHEUMATOID ARTHRITIS
     Dates: start: 20130208
  2. PREDNISONE [Concomitant]
     Indication: PRODUCT USED FOR UNKNOWN INDICATION
  3. FOLIC ACID [Concomitant]
     Indication: PRODUCT USED FOR UNKNOWN INDICATION
  4. CELEBREX [Concomitant]
     Indication: RHEUMATOID ARTHRITIS
  5. HYDROXYCHLOROQUINE [Concomitant]
     Indication: RHEUMATOID ARTHRITIS
  6. LISINOPRIL HCTZ [Concomitant]
     Indication: HYPERTENSION
     Dosage: 20/25 MG DAILY
  7. METFORMIN [Concomitant]
     Indication: DIABETES MELLITUS
  8. PHENTERMINE [Concomitant]
     Indication: WEIGHT CONTROL
  9. PROTONIX [Concomitant]
     Indication: GASTRIC DISORDER
  10. ABILIFY [Concomitant]
     Indication: DEPRESSION
  11. CYMBALTA [Concomitant]
     Indication: DEPRESSION
     Dosage: 90 MG DAILY
  12. XANAX [Concomitant]
     Indication: ANXIETY
  13. BUPROPION [Concomitant]
     Indication: DEPRESSION
  14. HYDROXYZPAM [Concomitant]
     Indication: PRODUCT USED FOR UNKNOWN INDICATION
  15. ALBUTEROL [Concomitant]
     Indication: ASTHMA
     Dosage: 2 PUFFS EVERY 4 HOURS OR AS REQUIRED
  16. SYMBICORT [Concomitant]
     Indication: ASTHMA
  17. MS CONTIN [Concomitant]
     Indication: PAIN
  18. PERCOCET [Concomitant]
     Indication: PAIN
     Dosage: 10/325 MG 1.5 TABLETS EVERY 4-6 HOURS

REACTIONS (4)
  - Knee arthroplasty [Not Recovered/Not Resolved]
  - Fatigue [Not Recovered/Not Resolved]
  - Pain [Not Recovered/Not Resolved]
  - Fatigue [Unknown]
